FAERS Safety Report 8947592 (Version 1)
Quarter: 2012Q4

REPORT INFORMATION
  Report Type: 
  Country: FR (occurrence: FR)
  Receive Date: 20121204
  Receipt Date: 20121204
  Transmission Date: 20130627
  Serious: Yes (Hospitalization, Other)
  Sender: FDA-Public Use
  Company Number: FR-PFIZER INC-2012298313

PATIENT
  Age: 85 Year
  Sex: Female

DRUGS (9)
  1. ZOLOFT [Suspect]
     Dosage: 25 mg, daily
     Route: 048
     Dates: start: 201207, end: 201208
  2. IMOVANE [Suspect]
     Dosage: UNK
     Route: 048
     Dates: end: 20121004
  3. TEMESTA [Suspect]
     Dosage: UNK
     Route: 048
     Dates: start: 201210, end: 201211
  4. LASILIX [Concomitant]
     Dosage: UNK
  5. CARDENSIEL [Concomitant]
     Dosage: UNK
  6. MINISINTROM [Concomitant]
     Dosage: UNK
  7. VENTOLINE [Concomitant]
     Dosage: UNK
  8. INIPOMP [Concomitant]
     Dosage: UNK
  9. CORDARONE [Concomitant]
     Dosage: UNK

REACTIONS (8)
  - Hallucination [Recovered/Resolved]
  - Disorientation [Recovered/Resolved]
  - Confusional state [Unknown]
  - Cardiac failure [Unknown]
  - Drug level increased [Unknown]
  - Hypothyroidism [Unknown]
  - Blood thyroid stimulating hormone increased [Unknown]
  - Panic attack [Unknown]
